FAERS Safety Report 22256594 (Version 1)
Quarter: 2023Q2

REPORT INFORMATION
  Report Type: Other
  Country: CN (occurrence: CN)
  Receive Date: 20230426
  Receipt Date: 20230426
  Transmission Date: 20230722
  Serious: Yes (Hospitalization)
  Sender: FDA-Public Use
  Company Number: CN-ANTENGENE-20230401626

PATIENT

DRUGS (5)
  1. XPOVIO [Suspect]
     Active Substance: SELINEXOR
     Indication: Acute leukaemia
     Dosage: 60 MG, CYCLIC
     Route: 048
     Dates: start: 20230310, end: 20230403
  2. AZACITIDINE [Concomitant]
     Active Substance: AZACITIDINE
     Indication: Acute leukaemia
     Dosage: 100 MG, CYCLIC
     Dates: start: 20230310, end: 20230403
  3. VENETOCLAX [Concomitant]
     Active Substance: VENETOCLAX
     Indication: Acute leukaemia
     Dosage: 100 MG, SINGLE
     Dates: start: 20230310, end: 20230310
  4. VENETOCLAX [Concomitant]
     Active Substance: VENETOCLAX
     Dosage: 200 MG, SINGLE
     Dates: start: 202303, end: 202303
  5. VENETOCLAX [Concomitant]
     Active Substance: VENETOCLAX
     Dosage: 400 MG, CYCLIC
     Dates: start: 202303, end: 20230403

REACTIONS (5)
  - White blood cell count decreased [Recovering/Resolving]
  - Neutrophil count decreased [Recovering/Resolving]
  - Haemoglobin decreased [Recovering/Resolving]
  - Platelet count decreased [Recovering/Resolving]
  - Off label use [Unknown]

NARRATIVE: CASE EVENT DATE: 20230310
